FAERS Safety Report 4342508-3 (Version None)
Quarter: 2004Q2

REPORT INFORMATION
  Report Type: 
  Country: None (occurrence: None)
  Receive Date: 20040416
  Receipt Date: 20040406
  Transmission Date: 20050107
  Serious: Yes (Hospitalization, Other)
  Sender: FDA-Public Use
  Company Number: 2004022889

PATIENT

DRUGS (2)
  1. FELDENE [Suspect]
     Indication: KYPHOSCOLIOSIS
     Dosage: ORAL
     Route: 048
     Dates: end: 20030513
  2. ACETYLSALICYLIC ACID SRT [Suspect]
     Indication: ILL-DEFINED DISORDER
     Dosage: ORAL
     Route: 048
     Dates: end: 20030513

REACTIONS (2)
  - DRUG INTERACTION [None]
  - DUODENAL ULCER HAEMORRHAGE [None]
